FAERS Safety Report 21256560 (Version 1)
Quarter: 2022Q3

REPORT INFORMATION
  Report Type: Spontaneous
  Country: US (occurrence: US)
  Receive Date: 20220826
  Receipt Date: 20220826
  Transmission Date: 20221027
  Serious: Yes (Other)
  Sender: FDA-Public Use
  Company Number: US-BAXTER-2022BAX018046

PATIENT
  Age: 39 Year
  Sex: Female

DRUGS (18)
  1. VANCOMYCIN [Suspect]
     Active Substance: VANCOMYCIN
     Route: 065
  2. INSULIN NOS [Suspect]
     Active Substance: INSULIN NOS
     Indication: Hypertriglyceridaemia
     Dosage: INFUSION DRIP; DISCONTINUED ON HOSPITAL DAY 5
     Route: 041
  3. DEXTROSE [Suspect]
     Active Substance: DEXTROSE
     Indication: Hypertriglyceridaemia
     Dosage: 10%
     Route: 065
  4. SODIUM CHLORIDE [Suspect]
     Active Substance: SODIUM CHLORIDE
     Indication: Hypertriglyceridaemia
     Dosage: NORMAL
     Route: 041
  5. HEPARIN [Suspect]
     Active Substance: HEPARIN SODIUM
     Indication: Pulmonary embolism
     Dosage: INFUSION
     Route: 065
  6. EPOPROSTENOL [Suspect]
     Active Substance: EPOPROSTENOL
     Indication: Sedation
  7. EPOPROSTENOL [Suspect]
     Active Substance: EPOPROSTENOL
     Indication: Paralysis
  8. VASOPRESSIN [Concomitant]
     Active Substance: VASOPRESSIN
     Indication: Mean arterial pressure
     Dosage: 0.04 U/MIN
     Route: 065
  9. NOREPINEPHRINE [Concomitant]
     Active Substance: NOREPINEPHRINE
     Indication: Mean arterial pressure
     Dosage: UP TO 22 MCG/MIN
     Route: 065
  10. NOREPINEPHRINE [Concomitant]
     Active Substance: NOREPINEPHRINE
     Dosage: UP TO 22 MCG/MIN
     Route: 065
  11. CISATRACURIUM [Concomitant]
     Active Substance: CISATRACURIUM
     Indication: Sedation
     Route: 065
  12. CISATRACURIUM [Concomitant]
     Active Substance: CISATRACURIUM
     Indication: Paralysis
  13. EPINEPHRINE [Concomitant]
     Active Substance: EPINEPHRINE
     Indication: Supportive care
     Dosage: 5 MCG/MIN
     Route: 065
  14. EPINEPHRINE [Concomitant]
     Active Substance: EPINEPHRINE
     Dosage: TITRATED DOWN TO 2 MCG/MIN
     Route: 065
  15. ALTEPLASE [Concomitant]
     Active Substance: ALTEPLASE
     Indication: Pulmonary embolism
     Dosage: 50 MG (10 MG BOLUS, 40 MG INFUSION GIVEN OVER 2 HOURS), SYSTEMICALLY
     Route: 040
  16. ALTEPLASE [Concomitant]
     Active Substance: ALTEPLASE
     Indication: Shock
  17. ALTEPLASE [Concomitant]
     Active Substance: ALTEPLASE
     Indication: Hypoxia
  18. GEMFIBROZIL [Concomitant]
     Active Substance: GEMFIBROZIL
     Indication: Hypertriglyceridaemia
     Route: 065

REACTIONS (1)
  - Thrombocytopenia [Unknown]
